FAERS Safety Report 14851847 (Version 2)
Quarter: 2019Q1

REPORT INFORMATION
  Report Type: Spontaneous
  Country: US (occurrence: US)
  Receive Date: 20180507
  Receipt Date: 20190318
  Transmission Date: 20190417
  Serious: No
  Sender: FDA-Public Use
  Company Number: US-009507513-1804USA010459

PATIENT
  Age: 69 Year
  Sex: Female

DRUGS (2)
  1. ASMANEX [Suspect]
     Active Substance: MOMETASONE FUROATE
     Dosage: 1 PUFF ORALLY TWICE DAILY
     Route: 055
  2. ASMANEX [Suspect]
     Active Substance: MOMETASONE FUROATE
     Indication: ASTHMA
     Dosage: STRENGTH REPORTED AS 220 Y, UNK
     Route: 055

REACTIONS (6)
  - Dysphonia [Unknown]
  - Cough [Unknown]
  - Product quality issue [Unknown]
  - Dysphonia [Recovered/Resolved]
  - Product quality issue [Unknown]
  - Poor quality device used [Unknown]

NARRATIVE: CASE EVENT DATE: 20190311
